FAERS Safety Report 6614273-8 (Version None)
Quarter: 2010Q1

REPORT INFORMATION
  Report Type: 
  Country: None (occurrence: None)
  Receive Date: 20100304
  Receipt Date: 20100218
  Transmission Date: 20100710
  Serious: Yes (Other)
  Sender: FDA-Public Use
  Company Number: US-ELI_LILLY_AND_COMPANY-US201002005861

PATIENT
  Sex: Male

DRUGS (5)
  1. CIALIS [Suspect]
     Indication: ERECTILE DYSFUNCTION
     Dosage: 10 MG, UNK
     Dates: start: 20100121, end: 20100121
  2. CIALIS [Suspect]
     Dosage: 10 MG, UNK
     Dates: start: 20100131, end: 20100131
  3. XANAX [Concomitant]
     Dosage: 1 D/F, DAILY (1/D)
     Dates: start: 20040101
  4. SERZONE [Concomitant]
     Dosage: UNK, DAILY (1/D)
     Dates: start: 20040101
  5. GLIPIZIDE [Concomitant]
     Dosage: 2.5 MG, DAILY (1/D)
     Dates: start: 20090101

REACTIONS (13)
  - ANXIETY [None]
  - BLINDNESS UNILATERAL [None]
  - EYE DISORDER [None]
  - FLUSHING [None]
  - HYPERMETROPIA [None]
  - INTENTIONAL DRUG MISUSE [None]
  - OPTIC NERVE DISORDER [None]
  - OPTIC NEUROPATHY [None]
  - PAIN IN EXTREMITY [None]
  - THERAPEUTIC RESPONSE DECREASED [None]
  - VISION BLURRED [None]
  - VISUAL ACUITY REDUCED [None]
  - WRONG TECHNIQUE IN DRUG USAGE PROCESS [None]
